FAERS Safety Report 8249807-3 (Version None)
Quarter: 2012Q2

REPORT INFORMATION
  Report Type: 
  Country: None (occurrence: None)
  Receive Date: 20120402
  Receipt Date: 20120326
  Transmission Date: 20120825
  Serious: Yes (Other)
  Sender: FDA-Public Use
  Company Number: PHHY2012DE026246

PATIENT
  Sex: Female
  Weight: 98 kg

DRUGS (3)
  1. DIOVAN HCT [Suspect]
     Dosage: 1 DF (320 MG VALS AND 12.5 MG HYDRO), DAILY
     Route: 048
     Dates: start: 20020719
  2. OTHER ANTIHYPERTENSIVES [Concomitant]
  3. ALPHA-ADRENOCEPTOR BLOCKING AGENTS [Concomitant]

REACTIONS (2)
  - DIABETES MELLITUS [None]
  - HYPERTENSION [None]
